FAERS Safety Report 11009959 (Version 1)
Quarter: 2015Q2

REPORT INFORMATION
  Report Type: Spontaneous
  Country: US (occurrence: None)
  Receive Date: 20150409
  Receipt Date: 20150409
  Transmission Date: 20150821
  Serious: No
  Sender: FDA-Public Use
  Company Number: DL2015-0318

PATIENT
  Age: 25 Year
  Sex: Female

DRUGS (2)
  1. MIFEPRISTONE [Suspect]
     Active Substance: MIFEPRISTONE
     Indication: ABORTION INDUCED
     Route: 048
     Dates: start: 20150212
  2. MISOPROSTOL. [Suspect]
     Active Substance: MISOPROSTOL
     Route: 067
     Dates: start: 20150213

REACTIONS (4)
  - Pain [None]
  - Nausea [None]
  - Haemorrhage [None]
  - Muscle spasms [None]

NARRATIVE: CASE EVENT DATE: 20150214
